FAERS Safety Report 21248894 (Version 2)
Quarter: 2022Q3

REPORT INFORMATION
  Report Type: Spontaneous
  Country: US (occurrence: US)
  Receive Date: 20220824
  Receipt Date: 20220906
  Transmission Date: 20221027
  Serious: No
  Sender: FDA-Public Use
  Company Number: US-ANIPHARMA-2022-US-005155

PATIENT
  Age: 53 Year
  Sex: Female
  Weight: 50.8 kg

DRUGS (2)
  1. ARIMIDEX [Suspect]
     Active Substance: ANASTROZOLE
     Indication: Breast cancer
     Dosage: ONE A DAY
     Route: 048
     Dates: start: 202110, end: 20220304
  2. LOVASTATIN [Concomitant]
     Active Substance: LOVASTATIN
     Route: 065
     Dates: start: 201903

REACTIONS (7)
  - Hepatic enzyme increased [Unknown]
  - Off label use [Recovered/Resolved]
  - Headache [Recovered/Resolved]
  - Chest pain [Recovered/Resolved]
  - Hot flush [Recovering/Resolving]
  - Dyspnoea [Recovered/Resolved]
  - Oestradiol increased [Unknown]

NARRATIVE: CASE EVENT DATE: 20211001
